FAERS Safety Report 14346395 (Version 1)
Quarter: 2018Q1

REPORT INFORMATION
  Report Type: Spontaneous
  Country: NL (occurrence: NL)
  Receive Date: 20180103
  Receipt Date: 20180103
  Transmission Date: 20180509
  Serious: Yes (Hospitalization, Other)
  Sender: FDA-Public Use
  Company Number: NL-MYLANLABS-2017M1083234

PATIENT
  Age: 59 Year
  Sex: Female

DRUGS (5)
  1. ARTANE [Concomitant]
     Active Substance: TRIHEXYPHENIDYL HYDROCHLORIDE
     Dosage: 2DD2MG
  2. PRIADEL [Concomitant]
     Active Substance: LITHIUM
     Dosage: 1DD800MG
  3. FLUVOXAMINE [Suspect]
     Active Substance: FLUVOXAMINE
     Indication: PRODUCT USED FOR UNKNOWN INDICATION
     Dosage: 1DD25MG
  4. LORAZEPAM. [Concomitant]
     Active Substance: LORAZEPAM
     Dosage: 1DD1
  5. CLOZAPINE. [Suspect]
     Active Substance: CLOZAPINE
     Indication: PSYCHOTIC DISORDER
     Dosage: 1X DAAGS 1 TABLET
     Dates: start: 201712, end: 20171214

REACTIONS (4)
  - Agranulocytosis [Unknown]
  - Depressed level of consciousness [Unknown]
  - Body temperature increased [Unknown]
  - Confusional state [Unknown]

NARRATIVE: CASE EVENT DATE: 201712
